FAERS Safety Report 6996993-9 (Version None)
Quarter: 2010Q3

REPORT INFORMATION
  Report Type: 
  Country: None (occurrence: None)
  Receive Date: 20100918
  Receipt Date: 20090813
  Transmission Date: 20110219
  Serious: No
  Sender: FDA-Public Use
  Company Number: US-WYE-H10588109

PATIENT
  Sex: Female

DRUGS (1)
  1. EFFEXOR XR [Suspect]
     Indication: DEPRESSION
     Route: 048
     Dates: start: 20070101, end: 20080201

REACTIONS (5)
  - ABNORMAL DREAMS [None]
  - AGGRESSION [None]
  - DRUG WITHDRAWAL SYNDROME [None]
  - IMPULSIVE BEHAVIOUR [None]
  - IRRITABILITY [None]
